FAERS Safety Report 23258754 (Version 1)
Quarter: 2023Q4

REPORT INFORMATION
  Report Type: Spontaneous
  Country: ES (occurrence: None)
  Receive Date: 20231204
  Receipt Date: 20231204
  Transmission Date: 20240109
  Serious: Yes (Hospitalization, Other)
  Sender: FDA-Public Use
  Company Number: 2023A272223

PATIENT
  Age: 80 Year
  Sex: Male

DRUGS (6)
  1. ROFLUMILAST [Suspect]
     Active Substance: ROFLUMILAST
     Indication: Bronchitis
     Route: 048
  2. ROFLUMILAST [Suspect]
     Active Substance: ROFLUMILAST
     Indication: Bronchitis
     Route: 048
  3. SPIRIVA [Concomitant]
     Active Substance: TIOTROPIUM BROMIDE MONOHYDRATE
  4. AMIODARONE HYDROCHLORIDE [Concomitant]
     Active Substance: AMIODARONE HYDROCHLORIDE
  5. SINTROM [Concomitant]
     Active Substance: ACENOCOUMAROL
  6. ALLOPURINOL [Concomitant]
     Active Substance: ALLOPURINOL

REACTIONS (10)
  - Angina pectoris [Not Recovered/Not Resolved]
  - Heart rate decreased [Unknown]
  - Heart rate increased [Unknown]
  - Cardiac discomfort [Unknown]
  - Coronary artery disease [Recovered/Resolved with Sequelae]
  - Depressed mood [Not Recovered/Not Resolved]
  - Dyspepsia [Not Recovered/Not Resolved]
  - Diarrhoea [Not Recovered/Not Resolved]
  - Discontinued product administered [Unknown]
  - Incorrect dose administered [Unknown]
